FAERS Safety Report 18329244 (Version 1)
Quarter: 2020Q3

REPORT INFORMATION
  Report Type: Spontaneous
  Country: US (occurrence: US)
  Receive Date: 20200929
  Receipt Date: 20200929
  Transmission Date: 20201103
  Serious: Yes (Hospitalization)
  Sender: FDA-Public Use
  Company Number: None

PATIENT
  Sex: Female

DRUGS (16)
  1. FOLIC ACID. [Concomitant]
     Active Substance: FOLIC ACID
  2. BUT/APAP/CAF [Concomitant]
  3. CHANTIX [Concomitant]
     Active Substance: VARENICLINE TARTRATE
  4. METHYPRED [Concomitant]
  5. AMITRIPTYLIN [Concomitant]
     Active Substance: AMITRIPTYLINE
  6. PREDNISONE. [Concomitant]
     Active Substance: PREDNISONE
  7. ESTRADIOL. [Concomitant]
     Active Substance: ESTRADIOL
  8. PROCHLORPER [Concomitant]
  9. FAMOTIDINE. [Concomitant]
     Active Substance: FAMOTIDINE
  10. TOPIRAMATE. [Concomitant]
     Active Substance: TOPIRAMATE
  11. METHADONE [Concomitant]
     Active Substance: METHADONE HYDROCHLORIDE
  12. XELJANZ XR [Suspect]
     Active Substance: TOFACITINIB CITRATE
     Route: 048
     Dates: start: 20200212
  13. METOPROLOL SUC [Concomitant]
  14. DICYCLOMIN [Concomitant]
  15. LORAZEPAM. [Concomitant]
     Active Substance: LORAZEPAM
  16. SUMATRIPTAN. [Concomitant]
     Active Substance: SUMATRIPTAN

REACTIONS (2)
  - Therapy interrupted [None]
  - Surgery [None]
